FAERS Safety Report 8394454-6 (Version None)
Quarter: 2012Q2

REPORT INFORMATION
  Report Type: 
  Country: None (occurrence: None)
  Receive Date: 20120530
  Receipt Date: 20120521
  Transmission Date: 20120825
  Serious: Yes (Hospitalization, Disabling)
  Sender: FDA-Public Use
  Company Number: PHHO2010RU06242

PATIENT
  Sex: Male
  Weight: 88.5 kg

DRUGS (7)
  1. TASIGNA [Suspect]
     Indication: CHRONIC MYELOID LEUKAEMIA
     Dosage: 800 MG, DAILY
     Route: 048
     Dates: start: 20100805
  2. METOPROLOL TARTRATE [Concomitant]
     Indication: PROPHYLAXIS
     Dosage: 150 MG, DAILY
     Route: 048
     Dates: start: 20100402, end: 20100428
  3. IMATINIB MESYLATE [Suspect]
     Dosage: 600 MG, QD
     Route: 048
  4. ASPIRIN [Concomitant]
     Indication: THROMBOSIS PROPHYLAXIS
     Dosage: 100 MG, QD
     Route: 048
     Dates: start: 20100402, end: 20100428
  5. ENALAPRIL MALEATE [Concomitant]
     Indication: PROPHYLAXIS
     Dosage: 10 MG, QD
     Route: 048
     Dates: start: 20100402, end: 20100428
  6. IMATINIB MESYLATE [Suspect]
     Indication: CHRONIC MYELOID LEUKAEMIA
     Dosage: 600 MG, QD
     Route: 048
     Dates: start: 20100212, end: 20100627
  7. METOPROLOL TARTRATE [Concomitant]

REACTIONS (2)
  - ECZEMA [None]
  - RASH [None]
